FAERS Safety Report 9676065 (Version 2)
Quarter: 2013Q4

REPORT INFORMATION
  Report Type: Report from Study
  Country: BR (occurrence: BR)
  Receive Date: 20131107
  Receipt Date: 20131206
  Transmission Date: 20140711
  Serious: Yes (Other)
  Sender: FDA-Public Use
  Company Number: PHHY2013BR126716

PATIENT
  Sex: Female
  Weight: 68 kg

DRUGS (3)
  1. DIOVAN [Suspect]
     Indication: HYPERTENSION
     Dosage: 320 MG, QD (ONCE IN THE MORNING)
     Route: 048
  2. METFORMIN [Concomitant]
     Indication: DIABETES MELLITUS
     Dosage: 1700 MG, A DAY
     Route: 048
  3. TRAYENTA [Concomitant]
     Indication: DIABETES MELLITUS
     Dosage: 5 MG, A DAY
     Route: 048

REACTIONS (1)
  - Diabetic retinal oedema [Unknown]
